FAERS Safety Report 15338843 (Version 1)
Quarter: 2018Q3

REPORT INFORMATION
  Report Type: Spontaneous
  Country: PK (occurrence: PK)
  Receive Date: 20180831
  Receipt Date: 20180831
  Transmission Date: 20181010
  Serious: Yes (Death, Other)
  Sender: FDA-Public Use
  Company Number: PK-JNJFOC-20180842075

PATIENT
  Age: 46 Year
  Sex: Male

DRUGS (13)
  1. LEVOFLOXACIN. [Suspect]
     Active Substance: LEVOFLOXACIN
     Indication: TUBERCULOSIS
     Route: 048
     Dates: start: 20180203, end: 2018
  2. DELAMANID [Suspect]
     Active Substance: DELAMANID
     Indication: TUBERCULOSIS
     Route: 048
     Dates: start: 20180314
  3. AMIKACIN. [Concomitant]
     Active Substance: AMIKACIN
     Indication: TUBERCULOSIS
     Route: 050
     Dates: start: 20180314, end: 20180411
  4. ETHIONAMIDE [Suspect]
     Active Substance: ETHIONAMIDE
     Indication: TUBERCULOSIS
     Route: 048
     Dates: start: 20180203, end: 2018
  5. AMIKACIN. [Concomitant]
     Active Substance: AMIKACIN
     Indication: TUBERCULOSIS
     Route: 050
     Dates: start: 20180203, end: 2018
  6. PYRIDOXINE HYDROCHLORIDE. [Concomitant]
     Active Substance: PYRIDOXINE HYDROCHLORIDE
     Indication: PROPHYLAXIS
     Route: 048
     Dates: start: 20180203
  7. CYCLOSERINE. [Suspect]
     Active Substance: CYCLOSERINE
     Indication: TUBERCULOSIS
     Route: 048
     Dates: start: 20180203, end: 2018
  8. CYCLOSERINE. [Suspect]
     Active Substance: CYCLOSERINE
     Indication: TUBERCULOSIS
     Route: 048
     Dates: start: 20180314
  9. LINEZOLID. [Suspect]
     Active Substance: LINEZOLID
     Indication: TUBERCULOSIS
     Route: 048
     Dates: start: 20180411
  10. PYRAZINAMIDE. [Suspect]
     Active Substance: PYRAZINAMIDE
     Indication: TUBERCULOSIS
     Route: 065
     Dates: start: 20180314
  11. ETHIONAMIDE [Suspect]
     Active Substance: ETHIONAMIDE
     Indication: TUBERCULOSIS
     Route: 048
     Dates: start: 20180314
  12. LEVOFLOXACIN. [Suspect]
     Active Substance: LEVOFLOXACIN
     Indication: TUBERCULOSIS
     Route: 048
     Dates: start: 20180314
  13. PYRIDOXINE HYDROCHLORIDE. [Concomitant]
     Active Substance: PYRIDOXINE HYDROCHLORIDE
     Indication: TUBERCULOSIS
     Route: 048
     Dates: start: 20180203

REACTIONS (1)
  - Myocardial infarction [Fatal]

NARRATIVE: CASE EVENT DATE: 20180704
